FAERS Safety Report 25959378 (Version 1)
Quarter: 2025Q4

REPORT INFORMATION
  Report Type: Spontaneous
  Country: EU (occurrence: EU)
  Receive Date: 20251025
  Receipt Date: 20251025
  Transmission Date: 20260118
  Serious: Yes (Other)
  Sender: TEVA
  Company Number: None

PATIENT
  Age: 86 Year
  Sex: Male
  Weight: 75 kg

DRUGS (1)
  1. SPIRONOLACTONE [Suspect]
     Active Substance: SPIRONOLACTONE
     Indication: Left ventricular failure
     Route: 048
     Dates: start: 20220927, end: 20251001

REACTIONS (2)
  - Breast cancer male [Recovered/Resolved with Sequelae]
  - Gynaecomastia [Unknown]

NARRATIVE: CASE EVENT DATE: 20250101
